FAERS Safety Report 4697869-2 (Version None)
Quarter: 2005Q2

REPORT INFORMATION
  Report Type: 
  Country: None (occurrence: None)
  Receive Date: 20050623
  Receipt Date: 20050608
  Transmission Date: 20051028
  Serious: Yes (Congenital Anomaly, Other)
  Sender: FDA-Public Use
  Company Number: 200511705JP

PATIENT
  Age: 68 Year
  Sex: Female

DRUGS (9)
  1. KETEK [Suspect]
     Indication: NASOPHARYNGITIS
     Dosage: DOSE: 2 TABLETS A DAY
     Route: 048
     Dates: start: 20050605, end: 20050607
  2. MELBIN [Concomitant]
     Dosage: DOSE: 2 TABLETS A DAY
     Route: 048
     Dates: start: 20050605
  3. LIPOVAS [Concomitant]
     Dosage: DOSE: 1 TABLET A DAY
     Route: 048
     Dates: start: 20050605
  4. GLUCOBAY [Concomitant]
     Dosage: DOSE: 3 TABLETS
     Route: 048
     Dates: start: 20050605
  5. CELTECT [Concomitant]
     Dosage: DOSE: 2 TABLETS A DAY
     Route: 048
     Dates: start: 20050605
  6. AMARYL [Concomitant]
     Dosage: DOSE: 2 TABLETS A DAY
     Route: 048
     Dates: start: 20050605
  7. TAKEPRON [Concomitant]
     Dosage: DOSE: 1 TABLET A DAY
     Route: 048
     Dates: start: 20050605
  8. SHOUSEIRYUUTOU [Concomitant]
     Dosage: DOSE: 2 PACKS A DAY
     Route: 048
     Dates: start: 20050605
  9. ROCEPHIN [Concomitant]
     Route: 041
     Dates: start: 20050601, end: 20050604

REACTIONS (2)
  - BACK PAIN [None]
  - PYREXIA [None]
